FAERS Safety Report 9787511 (Version 1)
Quarter: 2013Q4

REPORT INFORMATION
  Report Type: Spontaneous
  Country: MY (occurrence: MY)
  Receive Date: 20131230
  Receipt Date: 20131230
  Transmission Date: 20140711
  Serious: Yes (Death)
  Sender: FDA-Public Use
  Company Number: MY-ROCHE-1325873

PATIENT
  Age: 68 Year
  Sex: Male

DRUGS (12)
  1. VALCYTE [Suspect]
     Indication: CYTOMEGALOVIRUS INFECTION
     Route: 048
  2. FERROUS FUMARATE [Concomitant]
  3. BISOPROLOL [Concomitant]
  4. HYDROCORTISONE [Concomitant]
  5. ALFACALCIDOL [Concomitant]
  6. VORICONAZOLE [Concomitant]
  7. POTASSIUM CHLORIDE [Concomitant]
  8. PANTOPRAZOLE [Concomitant]
  9. MECOBALAMIN [Concomitant]
  10. DIGOXIN [Concomitant]
  11. FOLIC ACID [Concomitant]
  12. TACROLIMUS [Concomitant]

REACTIONS (2)
  - Neutropenia [Fatal]
  - Thrombocytopenia [Fatal]
